FAERS Safety Report 7099160-6 (Version None)
Quarter: 2010Q4

REPORT INFORMATION
  Report Type: 
  Country: None (occurrence: None)
  Receive Date: 20101112
  Receipt Date: 20101102
  Transmission Date: 20110411
  Serious: Yes (Hospitalization, Other)
  Sender: FDA-Public Use
  Company Number: PHHY2010CA74801

PATIENT
  Sex: Female

DRUGS (1)
  1. SANDOSTATIN LAR [Suspect]
     Indication: METASTATIC NEOPLASM
     Dosage: 20 MG EVERY FOUR WEEKS
     Dates: start: 20100129

REACTIONS (4)
  - ANAEMIA [None]
  - ASTHENIA [None]
  - DYSPNOEA [None]
  - LUNG INFECTION [None]
